FAERS Safety Report 10284404 (Version 1)
Quarter: 2014Q3

REPORT INFORMATION
  Report Type: Spontaneous
  Country: AU (occurrence: AU)
  Receive Date: 20140708
  Receipt Date: 20140708
  Transmission Date: 20150326
  Serious: Yes (Hospitalization)
  Sender: FDA-Public Use
  Company Number: AU-MYLANLABS-2014S1015289

PATIENT
  Age: 66 Year
  Sex: Female

DRUGS (2)
  1. QUININE [Suspect]
     Active Substance: QUININE
     Indication: MUSCLE SPASMS
     Route: 048
  2. QUININE [Suspect]
     Active Substance: QUININE
     Indication: OFF LABEL USE
     Route: 048

REACTIONS (3)
  - Tubulointerstitial nephritis [Recovered/Resolved]
  - Diarrhoea [Unknown]
  - Thrombotic microangiopathy [Recovered/Resolved]
